FAERS Safety Report 8437252-7 (Version None)
Quarter: 2012Q2

REPORT INFORMATION
  Report Type: 
  Country: None (occurrence: None)
  Receive Date: 20120614
  Receipt Date: 20120229
  Transmission Date: 20120825
  Serious: No
  Sender: FDA-Public Use
  Company Number: US-AMGEN-USASP2011025816

PATIENT
  Age: 69 Year
  Sex: Female
  Weight: 60.771 kg

DRUGS (5)
  1. PROLIA [Suspect]
     Indication: OSTEOPOROSIS POSTMENOPAUSAL
     Dosage: 60 MG, Q6MO
     Route: 058
     Dates: start: 20101215
  2. CALCIUM [Concomitant]
     Dosage: UNK
  3. MULTIPLE VITAMINS [Concomitant]
     Dosage: UNK
  4. VITAMIN D [Concomitant]
     Dosage: UNK
     Dates: start: 20000101
  5. ASPIRIN [Concomitant]
     Dosage: UNK
     Dates: start: 20100101

REACTIONS (10)
  - ARTHRALGIA [None]
  - NECK PAIN [None]
  - SKIN CANCER [None]
  - TOOTHACHE [None]
  - MYALGIA [None]
  - BACK PAIN [None]
  - DYSSTASIA [None]
  - PAIN IN JAW [None]
  - CYSTITIS [None]
  - GAIT DISTURBANCE [None]
